FAERS Safety Report 16757464 (Version 1)
Quarter: 2019Q3

REPORT INFORMATION
  Report Type: Report from Study
  Country: US (occurrence: US)
  Receive Date: 20190830
  Receipt Date: 20190830
  Transmission Date: 20191005
  Serious: Yes (Other)
  Sender: FDA-Public Use
  Company Number: US-BIOGEN-2016BI00234408

PATIENT
  Sex: Female

DRUGS (2)
  1. TECFIDERA [Suspect]
     Active Substance: DIMETHYL FUMARATE
     Indication: MULTIPLE SCLEROSIS
     Dosage: MAINTENANCE DOSE
     Route: 048
  2. TECFIDERA [Suspect]
     Active Substance: DIMETHYL FUMARATE
     Route: 048
     Dates: start: 20130610, end: 20130712

REACTIONS (8)
  - Thyroid disorder [Unknown]
  - Pain [Unknown]
  - Weight increased [Unknown]
  - Diabetes mellitus [Unknown]
  - Nightmare [Recovered/Resolved]
  - Night sweats [Recovered/Resolved]
  - Inappropriate schedule of product administration [Recovered/Resolved]
  - Hypertension [Unknown]
